FAERS Safety Report 17453104 (Version 1)
Quarter: 2020Q1

REPORT INFORMATION
  Report Type: Report from Study
  Country: US (occurrence: US)
  Receive Date: 20200224
  Receipt Date: 20200224
  Transmission Date: 20200409
  Serious: Yes (Other)
  Sender: FDA-Public Use
  Company Number: NVSC2020US040600

PATIENT
  Age: 1 Year
  Sex: Female
  Weight: 7.62 kg

DRUGS (5)
  1. PAZOPANIB [Suspect]
     Active Substance: PAZOPANIB
     Indication: SPINDLE CELL SARCOMA
     Dosage: 65 MG
     Route: 048
     Dates: start: 20190910
  2. SENNA [Concomitant]
     Active Substance: SENNA LEAF\SENNOSIDES\SENNOSIDES A AND B
     Indication: CONSTIPATION
     Dosage: 2.2 MG
     Route: 065
     Dates: start: 20190627
  3. ONDANSETRON [Concomitant]
     Active Substance: ONDANSETRON
     Indication: NAUSEA
     Dosage: 1 MG
     Route: 065
     Dates: start: 20190627
  4. ONDANSETRON [Concomitant]
     Active Substance: ONDANSETRON
     Indication: VOMITING
  5. SULFAMETHOXAZOLE AND TRIMETHOPRIM [Concomitant]
     Active Substance: SULFAMETHOXAZOLE\TRIMETHOPRIM
     Indication: INFECTION PROPHYLAXIS
     Dosage: 4.5 ML
     Route: 065
     Dates: start: 20191003

REACTIONS (21)
  - Blood alkaline phosphatase increased [Recovered/Resolved]
  - Aspartate aminotransferase increased [Recovered/Resolved]
  - Neutrophil count decreased [Recovered/Resolved]
  - Hypertension [Recovered/Resolved]
  - Tachycardia [Not Recovered/Not Resolved]
  - Hyperphosphataemia [Recovered/Resolved]
  - Proteinuria [Recovered/Resolved]
  - Hyperkalaemia [Recovered/Resolved]
  - Aspartate aminotransferase increased [Recovered/Resolved]
  - Hyperkalaemia [Recovered/Resolved]
  - Aspartate aminotransferase increased [Recovered/Resolved]
  - Haematuria [Recovered/Resolved]
  - Blood alkaline phosphatase increased [Recovered/Resolved]
  - Eosinophilia [Not Recovered/Not Resolved]
  - Dyspepsia [Recovered/Resolved]
  - Blood alkaline phosphatase increased [Recovered/Resolved]
  - Blood alkaline phosphatase increased [Recovered/Resolved]
  - White blood cell count decreased [Not Recovered/Not Resolved]
  - Neutrophil count decreased [Recovered/Resolved]
  - Insomnia [Recovered/Resolved]
  - Insomnia [Recovered/Resolved]

NARRATIVE: CASE EVENT DATE: 20190919
